FAERS Safety Report 24282497 (Version 1)
Quarter: 2024Q3

REPORT INFORMATION
  Report Type: Spontaneous
  Country: IN (occurrence: IN)
  Receive Date: 20240904
  Receipt Date: 20240904
  Transmission Date: 20241016
  Serious: Yes (Death)
  Sender: Alora Pharma
  Company Number: IN-ACELLA PHARMACEUTICALS, LLC-2024ALO00425

PATIENT
  Age: 2 Year

DRUGS (1)
  1. DEXTROMETHORPHAN [Suspect]
     Active Substance: DEXTROMETHORPHAN
     Dosage: UNK, SYRUP

REACTIONS (2)
  - Neurotoxicity [Fatal]
  - Brain oedema [Fatal]
